FAERS Safety Report 18424351 (Version 9)
Quarter: 2021Q1

REPORT INFORMATION
  Report Type: Spontaneous
  Country: CA (occurrence: CA)
  Receive Date: 20201026
  Receipt Date: 20210306
  Transmission Date: 20210419
  Serious: Yes (Other)
  Sender: FDA-Public Use
  Company Number: CA-CELLTRION INC.-2020CA028090

PATIENT

DRUGS (7)
  1. INFLECTRA [Suspect]
     Active Substance: INFLIXIMAB-DYYB
     Dosage: 350 MG, AT 0, 2, 6  WEEKS, THEN EVERY 8 WEEKS
     Route: 042
     Dates: start: 20201104
  2. IMURAN [Concomitant]
     Active Substance: AZATHIOPRINE
     Dosage: UNK
     Route: 065
     Dates: start: 202005
  3. INFLECTRA [Suspect]
     Active Substance: INFLIXIMAB-DYYB
     Dosage: 350 MG, AT 0, 2, 6  WEEKS, THEN EVERY 8 WEEKS
     Route: 042
     Dates: start: 20200929
  4. INFLECTRA [Suspect]
     Active Substance: INFLIXIMAB-DYYB
     Dosage: 350 MG EVERY 4 WEEKS
     Route: 042
     Dates: start: 20201230
  5. INFLECTRA [Suspect]
     Active Substance: INFLIXIMAB-DYYB
     Indication: CROHN^S DISEASE
     Dosage: 350 MG, AT 0, 2, 6  WEEKS, THEN EVERY 8 WEEKS
     Route: 042
     Dates: start: 20200916, end: 20201104
  6. INFLECTRA [Suspect]
     Active Substance: INFLIXIMAB-DYYB
     Dosage: 350 MG EVERY 4 WEEKS
     Route: 042
     Dates: start: 20201203
  7. IRON [Concomitant]
     Active Substance: IRON
     Dosage: 1 CO, DAILY (DIE)
     Route: 048
     Dates: start: 201907

REACTIONS (17)
  - Headache [Unknown]
  - Dysphagia [Unknown]
  - Arthralgia [Recovering/Resolving]
  - Inappropriate schedule of product administration [Unknown]
  - Inflammatory bowel disease [Not Recovered/Not Resolved]
  - Drug ineffective [Unknown]
  - Synovial cyst [Unknown]
  - Foreign body in throat [Unknown]
  - Off label use [Unknown]
  - Condition aggravated [Not Recovered/Not Resolved]
  - Tonsillar hypertrophy [Unknown]
  - Cough [Unknown]
  - Off label use [Unknown]
  - Oropharyngeal discomfort [Unknown]
  - Viral infection [Unknown]
  - Body temperature decreased [Unknown]
  - Blood pressure fluctuation [Unknown]

NARRATIVE: CASE EVENT DATE: 20200916
